FAERS Safety Report 4747789-X (Version None)
Quarter: 2005Q3

REPORT INFORMATION
  Report Type: 
  Country: None (occurrence: None)
  Receive Date: 20050817
  Receipt Date: 20050817
  Transmission Date: 20060218
  Serious: Yes (Death)
  Sender: FDA-Public Use
  Company Number: None

PATIENT
  Age: 52 Year
  Sex: Male
  Weight: 104.3273 kg

DRUGS (1)
  1. TYLENOL SINUS   500 MG -MAXIMUM STRENGTH-   MCNEIL [Suspect]
     Indication: MULTIPLE ALLERGIES
     Dosage: 6-8 PILLS  DAILY  ORAL
     Route: 048
     Dates: start: 19970818, end: 20051201

REACTIONS (1)
  - HEPATOCELLULAR DAMAGE [None]
